FAERS Safety Report 20254796 (Version 5)
Quarter: 2022Q1

REPORT INFORMATION
  Report Type: Report from Study
  Country: HU (occurrence: HU)
  Receive Date: 20211230
  Receipt Date: 20220225
  Transmission Date: 20220423
  Serious: Yes (Death, Hospitalization, Other)
  Sender: FDA-Public Use
  Company Number: HU-NOVARTISPH-NVSC2021HU293677

PATIENT
  Age: 58 Year
  Sex: Female

DRUGS (21)
  1. METFORMIN HYDROCHLORIDE\VILDAGLIPTIN [Suspect]
     Active Substance: METFORMIN HYDROCHLORIDE\VILDAGLIPTIN
     Indication: Diabetes mellitus
     Dosage: 1 DOSAGE FORM, BID
     Route: 065
     Dates: start: 20210622
  2. PANTOPRAZOLE [Suspect]
     Active Substance: PANTOPRAZOLE
     Indication: Product used for unknown indication
     Dosage: UNK
     Route: 065
  3. SIMBRINZA [Suspect]
     Active Substance: BRIMONIDINE TARTRATE\BRINZOLAMIDE
     Indication: Product used for unknown indication
     Dosage: UNK
     Route: 065
  4. SUPRAX [Concomitant]
     Active Substance: CEFIXIME
     Indication: Product used for unknown indication
     Dosage: UNK
     Route: 065
  5. OXYGEN [Concomitant]
     Active Substance: OXYGEN
     Indication: Product used for unknown indication
     Dosage: 31 L/MIN
     Route: 045
     Dates: start: 202112
  6. ENOXAPARIN SODIUM [Concomitant]
     Active Substance: ENOXAPARIN SODIUM
     Indication: Product used for unknown indication
     Dosage: UNK
     Route: 065
  7. CARVEDILOL [Concomitant]
     Active Substance: CARVEDILOL
     Indication: Product used for unknown indication
     Dosage: 20 MG (IN THE EVENING)
     Route: 065
  8. TORVATEC [Concomitant]
     Indication: Product used for unknown indication
     Dosage: UNK
     Route: 065
  9. ISOPHANE INSULIN [Concomitant]
     Active Substance: INSULIN NOS
     Indication: Product used for unknown indication
     Dosage: 22E (IN THE EVENING)
     Route: 065
  10. ACTRAPID [Concomitant]
     Active Substance: INSULIN HUMAN
     Indication: Product used for unknown indication
     Dosage: UNK, 20E, TID
     Route: 065
  11. SPIRONOLACTONE [Concomitant]
     Active Substance: SPIRONOLACTONE
     Indication: Product used for unknown indication
     Dosage: 25 MG, BID
     Route: 065
  12. AMLODIPINE BESYLATE\PERINDOPRIL ARGININE [Concomitant]
     Active Substance: AMLODIPINE BESYLATE\PERINDOPRIL ARGININE
     Indication: Product used for unknown indication
     Dosage: UNK UNK, QD (IN THE EVENING)
     Route: 065
  13. AMLODIPINE BESYLATE\INDAPAMIDE\PERINDOPRIL ARGININE [Concomitant]
     Active Substance: AMLODIPINE BESYLATE\INDAPAMIDE\PERINDOPRIL ARGININE
     Indication: Product used for unknown indication
     Dosage: UNK (IN THE MORING)
     Route: 065
  14. THEOPHYLLINE [Concomitant]
     Active Substance: THEOPHYLLINE
     Indication: Product used for unknown indication
     Dosage: UNK
     Route: 065
  15. VENTOLIN [Concomitant]
     Active Substance: ALBUTEROL SULFATE
     Indication: Product used for unknown indication
     Dosage: UNK
     Route: 065
  16. KONAKION [Concomitant]
     Active Substance: PHYTONADIONE
     Indication: Product used for unknown indication
     Dosage: UNK
     Route: 065
  17. HUMULIN R [Concomitant]
     Active Substance: INSULIN HUMAN
     Indication: Product used for unknown indication
     Dosage: 4 U
     Route: 042
     Dates: start: 202112
  18. WARFARIN [Concomitant]
     Active Substance: WARFARIN
     Indication: Anticoagulant therapy
     Dosage: 25 MG, BID
     Route: 048
     Dates: start: 202112
  19. ISOPTIN [Concomitant]
     Active Substance: VERAPAMIL HYDROCHLORIDE
     Indication: Product used for unknown indication
     Dosage: UNK
     Route: 065
  20. ATORVASTATIN [Concomitant]
     Active Substance: ATORVASTATIN
     Indication: Product used for unknown indication
     Dosage: UNK
     Route: 065
  21. FUROSEMIDE [Concomitant]
     Active Substance: FUROSEMIDE
     Indication: Diuretic therapy
     Dosage: UNK (EVERY OTHER DAY)
     Route: 065

REACTIONS (37)
  - Congestive cardiomyopathy [Fatal]
  - Cardiac failure [Fatal]
  - Arrhythmia [Fatal]
  - Pulmonary vascular disorder [Recovering/Resolving]
  - COVID-19 pneumonia [Unknown]
  - Pyrexia [Recovered/Resolved]
  - Cough [Unknown]
  - Dyspnoea [Recovering/Resolving]
  - Asthenia [Unknown]
  - Myocardial ischaemia [Unknown]
  - Type 2 diabetes mellitus [Unknown]
  - Pulmonary congestion [Recovered/Resolved]
  - Superinfection bacterial [Unknown]
  - Aortic valve incompetence [Unknown]
  - Glaucoma [Unknown]
  - Tricuspid valve incompetence [Unknown]
  - Mitral valve incompetence [Unknown]
  - Chronic obstructive pulmonary disease [Unknown]
  - Coronavirus infection [Unknown]
  - Asthma [Unknown]
  - Hypertension [Unknown]
  - Dyspnoea [Unknown]
  - Obesity [Unknown]
  - General physical health deterioration [Unknown]
  - Blood urea increased [Unknown]
  - Blood creatinine increased [Unknown]
  - Blood sodium decreased [Unknown]
  - Blood chloride decreased [Unknown]
  - Serum ferritin increased [Unknown]
  - Protein total increased [Recovered/Resolved]
  - Procalcitonin abnormal [Recovered/Resolved]
  - Blood albumin decreased [Unknown]
  - Red cell distribution width increased [Unknown]
  - Neutrophil count increased [Unknown]
  - Lymphocyte count decreased [Unknown]
  - Eosinophil count decreased [Unknown]
  - Immature granulocyte count increased [Unknown]

NARRATIVE: CASE EVENT DATE: 20100801
